FAERS Safety Report 6925196-9 (Version None)
Quarter: 2010Q3

REPORT INFORMATION
  Report Type: 
  Country: None (occurrence: None)
  Receive Date: 20100816
  Receipt Date: 20100809
  Transmission Date: 20110219
  Serious: Yes (Life-Threatening)
  Sender: FDA-Public Use
  Company Number: NO-GENZYME-FABR-1001260

PATIENT
  Sex: Male
  Weight: 100 kg

DRUGS (7)
  1. FABRAZYME [Suspect]
     Indication: FABRY'S DISEASE
     Dosage: 105 MG, Q2W
     Route: 042
     Dates: start: 20030304
  2. REPLAGAL [Suspect]
     Indication: FABRY'S DISEASE
     Dosage: UNK
     Route: 042
  3. METOPROLOL [Concomitant]
     Indication: CARDIAC DISORDER
     Dosage: 50 MG, QD
  4. LOSARTAN POTASSIUM [Concomitant]
     Indication: NEPHROPATHY
     Dosage: 100 MG, QD
  5. ENALAPRIL [Concomitant]
     Indication: NEPHROPATHY
     Dosage: 5 MG, QD
  6. ATORVASTATIN [Concomitant]
     Indication: CARDIAC DISORDER
     Dosage: 80 MG, QD
  7. SALICYLIC ACID [Concomitant]
     Indication: CARDIAC DISORDER
     Dosage: 75 MG, QD

REACTIONS (2)
  - ACUTE MYOCARDIAL INFARCTION [None]
  - RENAL IMPAIRMENT [None]
